FAERS Safety Report 25172291 (Version 2)
Quarter: 2025Q2

REPORT INFORMATION
  Report Type: Spontaneous
  Country: US (occurrence: US)
  Receive Date: 20250408
  Receipt Date: 20250502
  Transmission Date: 20250717
  Serious: Yes (Hospitalization, Other)
  Sender: CHEPLAPHARM
  Company Number: US-ASTRAZENECA-202501USA007371US

PATIENT
  Age: 42 Year
  Sex: Female

DRUGS (16)
  1. QUETIAPINE [Suspect]
     Active Substance: QUETIAPINE
     Indication: Depression
     Dosage: 600 MILLIGRAM, QD?DAILY DOSE: 600 MILLIGRAM
     Route: 048
     Dates: start: 2021, end: 20241209
  2. VALBENAZINE [Suspect]
     Active Substance: VALBENAZINE
     Indication: Chorea
     Dosage: 40 MILLIGRAM, QD?DAILY DOSE: 40 MILLIGRAM
     Route: 048
     Dates: start: 20241004
  3. VITAMIN B12 [Concomitant]
     Active Substance: CYANOCOBALAMIN
     Indication: Prophylaxis
     Dates: start: 2019
  4. DIVALPROEX SODIUM [Concomitant]
     Active Substance: DIVALPROEX SODIUM
     Dates: start: 20220725
  5. ZINC SULFATE [Concomitant]
     Active Substance: ZINC SULFATE
     Indication: Prophylaxis
     Dates: start: 2019
  6. Glucophage/metformin [Concomitant]
     Indication: Weight decreased
     Route: 048
     Dates: start: 20240424
  7. CIPROFLOXACIN [Concomitant]
     Active Substance: CIPROFLOXACIN
     Indication: Urinary tract infection
     Dates: start: 20240503
  8. Prometriu [Concomitant]
     Indication: Menopause
     Route: 048
     Dates: start: 20240729
  9. DEPAKOTE [Concomitant]
     Active Substance: DIVALPROEX SODIUM
  10. TRAZODONE [Concomitant]
     Active Substance: TRAZODONE HYDROCHLORIDE
     Indication: Insomnia
     Dosage: UNK; QHS?DAILY DOSE: 100 MILLIGRAM
     Dates: start: 20240918
  11. TRAZODONE [Concomitant]
     Active Substance: TRAZODONE HYDROCHLORIDE
     Indication: Akathisia
     Dosage: UNK; QHS?DAILY DOSE: 100 MILLIGRAM
     Dates: start: 20240918
  12. TRAZODONE [Concomitant]
     Active Substance: TRAZODONE HYDROCHLORIDE
     Indication: Depression
     Dosage: UNK; QHS?DAILY DOSE: 100 MILLIGRAM
     Dates: start: 20240918
  13. TRAZODONE [Concomitant]
     Active Substance: TRAZODONE HYDROCHLORIDE
     Indication: Insomnia
     Dates: start: 20241220
  14. TRAZODONE [Concomitant]
     Active Substance: TRAZODONE HYDROCHLORIDE
     Indication: Akathisia
     Dates: start: 20241220
  15. TRAZODONE [Concomitant]
     Active Substance: TRAZODONE HYDROCHLORIDE
     Indication: Depression
     Dates: start: 20241220
  16. ROBAXIN [Concomitant]
     Active Substance: METHOCARBAMOL
     Indication: Muscle spasms
     Dosage: AT BEDTIME ?DAILY DOSE: 750 MILLIGRAM

REACTIONS (13)
  - Major depression [Recovered/Resolved with Sequelae]
  - Suicide attempt [Unknown]
  - Hyperlipidaemia [Recovered/Resolved]
  - Insomnia [Unknown]
  - Migraine [Recovered/Resolved with Sequelae]
  - Obesity [Unknown]
  - Mobility decreased [Unknown]
  - Tachycardia [Unknown]
  - Fatigue [Unknown]
  - Disturbance in attention [Unknown]
  - Affective disorder [Unknown]
  - Cognitive disorder [Unknown]
  - Headache [Unknown]

NARRATIVE: CASE EVENT DATE: 20241207
